FAERS Safety Report 7524563-2 (Version None)
Quarter: 2011Q2

REPORT INFORMATION
  Report Type: 
  Country: None (occurrence: None)
  Receive Date: 20110525
  Receipt Date: 20110516
  Transmission Date: 20111010
  Serious: Yes (Hospitalization, Other)
  Sender: FDA-Public Use
  Company Number: NSR_00230_2011

PATIENT
  Age: 44 Year
  Sex: Female
  Weight: 60 kg

DRUGS (3)
  1. VENLAFAXINE [Suspect]
     Indication: MAJOR DEPRESSION
     Dosage: (INGESTION OF UP TO 4.5 G) ; ( DF)
  2. LAMOTRIGINE [Suspect]
     Indication: MAJOR DEPRESSION
     Dosage: (INGESTED UP TO 20 G) ; (DF)
  3. DIAZEPAM [Suspect]
     Indication: MAJOR DEPRESSION
     Dosage: (INGESTED UP TO 200 MG) ; (DF)

REACTIONS (17)
  - SUICIDE ATTEMPT [None]
  - TOXICITY TO VARIOUS AGENTS [None]
  - NEUROLEPTIC MALIGNANT SYNDROME [None]
  - ANTICHOLINERGIC SYNDROME [None]
  - GRAND MAL CONVULSION [None]
  - BLOOD CREATINE PHOSPHOKINASE MB INCREASED [None]
  - INCORRECT DOSE ADMINISTERED [None]
  - SEROTONIN SYNDROME [None]
  - HYPERREFLEXIA [None]
  - HAEMODIALYSIS [None]
  - BLOOD SODIUM DECREASED [None]
  - BODY TEMPERATURE INCREASED [None]
  - MYOCLONUS [None]
  - UNRESPONSIVE TO STIMULI [None]
  - MUSCLE RIGIDITY [None]
  - NO THERAPEUTIC RESPONSE [None]
  - BLOOD CREATINE PHOSPHOKINASE INCREASED [None]
